FAERS Safety Report 15571092 (Version 4)
Quarter: 2019Q1

REPORT INFORMATION
  Report Type: Spontaneous
  Country: JP (occurrence: JP)
  Receive Date: 20181031
  Receipt Date: 20190130
  Transmission Date: 20190417
  Serious: Yes (Other)
  Sender: FDA-Public Use
  Company Number: JP-EISAI MEDICAL RESEARCH-EC-2018-046339

PATIENT
  Age: 69 Year
  Sex: Female
  Weight: 90 kg

DRUGS (3)
  1. LENVIMA [Suspect]
     Active Substance: LENVATINIB
     Indication: HEPATOCELLULAR CARCINOMA
     Route: 048
     Dates: start: 20181002, end: 20181015
  2. SODIUM BICARBONATE. [Concomitant]
     Active Substance: SODIUM BICARBONATE
     Indication: PRODUCT USED FOR UNKNOWN INDICATION
     Dosage: UNKNOWN
     Route: 065
  3. LENVIMA [Suspect]
     Active Substance: LENVATINIB
     Route: 048
     Dates: start: 20181016, end: 20181017

REACTIONS (10)
  - Dehydration [Recovered/Resolved]
  - Tumour lysis syndrome [Recovered/Resolved]
  - Blood bilirubin increased [Recovered/Resolved]
  - Blood uric acid increased [Recovering/Resolving]
  - Diarrhoea [Recovered/Resolved]
  - Blood potassium decreased [Recovered/Resolved]
  - Blood phosphorus decreased [Recovered/Resolved]
  - Malaise [Recovered/Resolved]
  - Hyperthyroidism [Not Recovered/Not Resolved]
  - Blood calcium decreased [Recovered/Resolved]

NARRATIVE: CASE EVENT DATE: 20181009
